FAERS Safety Report 15657370 (Version 1)
Quarter: 2018Q4

REPORT INFORMATION
  Report Type: Report from Study
  Country: ES (occurrence: ES)
  Receive Date: 20181126
  Receipt Date: 20181126
  Transmission Date: 20190205
  Serious: Yes (Life-Threatening, Other)
  Sender: FDA-Public Use
  Company Number: ES-SAKK-2018SA184028AA

PATIENT
  Age: 63 Year
  Sex: Female
  Weight: 64 kg

DRUGS (7)
  1. INSULIN GLULISINE [Suspect]
     Active Substance: INSULIN GLULISINE
     Dosage: UNK UNK, UNK
     Route: 058
     Dates: start: 2015
  2. INSULIN GLULISINE [Suspect]
     Active Substance: INSULIN GLULISINE
     Dosage: 5 U, QD
     Route: 058
     Dates: start: 20150201
  3. INSULIN GLULISINE [Suspect]
     Active Substance: INSULIN GLULISINE
     Dosage: UNK
     Route: 058
     Dates: start: 201502
  4. METFORMINA [METFORMIN] [Concomitant]
     Dosage: UNK UNK, QD
     Route: 048
     Dates: start: 2000
  5. INSULIN GLULISINE [Suspect]
     Active Substance: INSULIN GLULISINE
     Indication: TYPE 2 DIABETES MELLITUS
     Dosage: UNK UNK, UNK
     Route: 058
     Dates: start: 2000
  6. METFORMINA [METFORMIN] [Concomitant]
     Indication: DIABETES MELLITUS
     Dosage: UNK UNK, TID (DOSE:1/2-1/2-1)
     Dates: start: 2000
  7. INSULIN GLARGINE [Suspect]
     Active Substance: INSULIN GLARGINE
     Indication: DIABETES MELLITUS
     Dosage: 38 IU, QD
     Route: 058
     Dates: start: 2000

REACTIONS (9)
  - Visual impairment [Not Recovered/Not Resolved]
  - Weight decreased [Unknown]
  - Speech disorder [Recovered/Resolved]
  - Dizziness [Recovered/Resolved]
  - Tremor [Recovered/Resolved]
  - Diabetic retinopathy [Not Recovered/Not Resolved]
  - Hypoglycaemia [Recovered/Resolved]
  - Lacrimation increased [Unknown]
  - Hypoglycaemia [Recovered/Resolved]

NARRATIVE: CASE EVENT DATE: 20150217
